FAERS Safety Report 6890149-6 (Version None)
Quarter: 2010Q3

REPORT INFORMATION
  Report Type: 
  Country: None (occurrence: None)
  Receive Date: 20100730
  Receipt Date: 20080820
  Transmission Date: 20110219
  Serious: No
  Sender: FDA-Public Use
  Company Number: US-PFIZER INC-2008070159

PATIENT
  Sex: Male
  Weight: 97.727 kg

DRUGS (9)
  1. LIPITOR [Suspect]
  2. TIKOSYN [Suspect]
     Indication: ARRHYTHMIA
     Dates: start: 20080501
  3. COUMADIN [Concomitant]
  4. TAMSULOSIN HYDROCHLORIDE [Concomitant]
  5. LISINOPRIL [Concomitant]
  6. POTASSIUM CHLORIDE [Concomitant]
  7. FINASTERIDE [Concomitant]
  8. ACETYLSALICYLIC ACID SRT [Concomitant]
  9. LEVAQUIN [Concomitant]

REACTIONS (5)
  - ARRHYTHMIA [None]
  - ARTHRALGIA [None]
  - BLOOD CREATINE PHOSPHOKINASE INCREASED [None]
  - MYALGIA [None]
  - PAIN IN EXTREMITY [None]
